FAERS Safety Report 4393232-2 (Version None)
Quarter: 2004Q3

REPORT INFORMATION
  Report Type: 
  Country: None (occurrence: None)
  Receive Date: 20040701
  Receipt Date: 20040618
  Transmission Date: 20050211
  Serious: Yes (Hospitalization)
  Sender: FDA-Public Use
  Company Number: JP-JNJFOC-20040204248

PATIENT
  Age: 48 Year
  Sex: Male
  Weight: 54 kg

DRUGS (18)
  1. REMICADE [Suspect]
     Indication: RHEUMATOID ARTHRITIS
     Dosage: SEE IMAGE
     Route: 041
     Dates: start: 20031112, end: 20031112
  2. REMICADE [Suspect]
     Indication: RHEUMATOID ARTHRITIS
     Dosage: SEE IMAGE
     Route: 041
     Dates: start: 20031126, end: 20031126
  3. REMICADE [Suspect]
     Indication: RHEUMATOID ARTHRITIS
     Dosage: SEE IMAGE
     Route: 041
     Dates: start: 20040210
  4. REMICADE [Suspect]
     Indication: RHEUMATOID ARTHRITIS
     Dosage: SEE IMAGE
     Route: 041
     Dates: start: 20040310
  5. REMICADE [Suspect]
     Indication: RHEUMATOID ARTHRITIS
     Dosage: SEE IMAGE
     Route: 041
     Dates: start: 20040421
  6. REMICADE [Suspect]
     Indication: RHEUMATOID ARTHRITIS
     Dosage: SEE IMAGE
     Route: 041
     Dates: start: 20040602
  7. . [Concomitant]
  8. . [Concomitant]
  9. . [Concomitant]
  10. . [Concomitant]
  11. . [Concomitant]
  12. RHEUMATREX [Concomitant]
  13. OMEPRAL (OMEPRAZOLE) TABLETS [Concomitant]
  14. SELBEX (TEPRENONE) CAPSULES [Concomitant]
  15. FOLIC ACID [Concomitant]
  16. TIENAM (TIENAM) [Concomitant]
  17. MEDROL [Concomitant]
  18. PREDNISOLONE [Concomitant]

REACTIONS (9)
  - CHILLS [None]
  - CONDITION AGGRAVATED [None]
  - DISEASE PROGRESSION [None]
  - DRUG INEFFECTIVE [None]
  - EXANTHEM [None]
  - HOT FLUSH [None]
  - LUNG NEOPLASM [None]
  - PYREXIA [None]
  - RHEUMATOID ARTHRITIS [None]
